FAERS Safety Report 7722366-7 (Version None)
Quarter: 2011Q3

REPORT INFORMATION
  Report Type: 
  Country: None (occurrence: None)
  Receive Date: 20110831
  Receipt Date: 20110829
  Transmission Date: 20111222
  Serious: Yes (Hospitalization)
  Sender: FDA-Public Use
  Company Number: US-PFIZER INC-2011200802

PATIENT
  Age: 49 Year
  Sex: Female
  Weight: 68.027 kg

DRUGS (6)
  1. CALCIUM CARBONATE [Suspect]
     Indication: SUPPLEMENTATION THERAPY
     Dosage: TWO SOFTGELS TWICE DAILY
     Route: 048
  2. CENTRUM SILVER [Suspect]
     Indication: SUPPLEMENTATION THERAPY
     Dosage: UNK
     Route: 048
  3. AMLODIPINE BESYLATE [Suspect]
     Indication: HYPERTENSION
     Dosage: 10 MG, 1X/DAY
     Route: 048
     Dates: start: 20110722
  4. LISINOPRIL [Suspect]
     Indication: HYPERTENSION
     Dosage: 10 MG, 1X/DAY
     Route: 048
     Dates: start: 20110722, end: 20110801
  5. TOCOPHERYL ACETATE [Suspect]
     Indication: SUPPLEMENTATION THERAPY
     Dosage: UNK
     Route: 048
  6. ESTRADIOL [Concomitant]
     Dosage: 5 MG, UNK

REACTIONS (4)
  - HYPERCALCAEMIA [None]
  - MUSCULAR WEAKNESS [None]
  - HYPERTENSION [None]
  - LETHARGY [None]
